FAERS Safety Report 9703829 (Version 2)
Quarter: 2013Q4

REPORT INFORMATION
  Report Type: Spontaneous
  Country: US (occurrence: US)
  Receive Date: 20131122
  Receipt Date: 20131223
  Transmission Date: 20140711
  Serious: Yes (Hospitalization, Other)
  Sender: FDA-Public Use
  Company Number: US-PFIZER INC-2013330258

PATIENT
  Age: 38 Year
  Sex: Female
  Weight: 49.89 kg

DRUGS (8)
  1. GABAPENTIN [Suspect]
     Indication: FIBROMYALGIA
     Dosage: 600 MG, 4X/DAY
     Dates: start: 2005, end: 201211
  2. GABAPENTIN [Suspect]
     Dosage: UNK
  3. MORPHINE SULFATE [Suspect]
     Dosage: UNK
  4. NORCO [Suspect]
     Indication: FIBROMYALGIA
     Dosage: 10/325 MG, EVERY 4 HRS
  5. NORCO [Suspect]
     Dosage: UNK
  6. VICODIN [Suspect]
     Indication: FIBROMYALGIA
     Dosage: 5/500 MG, EVERY 4 HRS
     Dates: start: 2001, end: 201108
  7. VICODIN [Suspect]
     Dosage: UNK
  8. XANAX [Concomitant]
     Indication: ANXIETY
     Dosage: 0.25 MG, 2X/DAY

REACTIONS (7)
  - Hip fracture [Unknown]
  - Upper limb fracture [Unknown]
  - Off label use [Unknown]
  - Road traffic accident [Unknown]
  - Post procedural infection [Unknown]
  - Drug ineffective for unapproved indication [Unknown]
  - Pain [Unknown]
